FAERS Safety Report 5775123-5 (Version None)
Quarter: 2008Q2

REPORT INFORMATION
  Report Type: 
  Country: None (occurrence: None)
  Receive Date: 20080617
  Receipt Date: 20080609
  Transmission Date: 20081010
  Serious: Yes (Life-Threatening, Hospitalization, Other)
  Sender: FDA-Public Use
  Company Number: US-NOVOPROD-276077

PATIENT
  Age: 68 Year
  Sex: Female

DRUGS (5)
  1. NOVOLOG [Suspect]
     Indication: INSULIN-REQUIRING TYPE 2 DIABETES MELLITUS
     Dosage: 15 IU, TID
     Route: 058
  2. LANTUS [Concomitant]
     Indication: INSULIN-REQUIRING TYPE 2 DIABETES MELLITUS
     Dosage: 15 U AT BEDTIME
     Route: 058
  3. LOPRESSOR [Concomitant]
  4. NORVASC [Concomitant]
  5. ZOCOR [Concomitant]

REACTIONS (6)
  - BLOOD GLUCOSE INCREASED [None]
  - CONVULSION [None]
  - GALLBLADDER DISORDER [None]
  - LOSS OF CONSCIOUSNESS [None]
  - MYOCARDIAL INFARCTION [None]
  - PANCREATITIS [None]
